FAERS Safety Report 6611931-6 (Version None)
Quarter: 2010Q1

REPORT INFORMATION
  Report Type: 
  Country: None (occurrence: None)
  Receive Date: 20100226
  Receipt Date: 20100226
  Transmission Date: 20100710
  Serious: No
  Sender: FDA-Public Use
  Company Number: None

PATIENT
  Age: 59 Year
  Sex: Male
  Weight: 81.6475 kg

DRUGS (1)
  1. ZICAM NASAL GEL DON'T KNOW. DON'T KNOW. [Suspect]
     Indication: NASOPHARYNGITIS
     Dosage: ONE NASAL DOSE EACH NOSTRIL ONCE DAILY NASAL
     Route: 045
     Dates: start: 20000105, end: 20000107

REACTIONS (1)
  - ANOSMIA [None]
